FAERS Safety Report 6105694-0 (Version None)
Quarter: 2009Q1

REPORT INFORMATION
  Report Type: 
  Country: None (occurrence: None)
  Receive Date: 20090306
  Receipt Date: 20090225
  Transmission Date: 20090719
  Serious: Yes (Other)
  Sender: FDA-Public Use
  Company Number: CH-PFIZER INC-2009175432

PATIENT

DRUGS (10)
  1. ATORVASTATIN CALCIUM [Suspect]
     Indication: BRAIN STEM SYNDROME
     Dosage: 40 MG, 1X/DAY
     Route: 048
     Dates: start: 20080910, end: 20081126
  2. COVERSUM [Suspect]
     Dosage: 2 MG, 1X/DAY
     Route: 048
     Dates: start: 20080915, end: 20081126
  3. MOSEGOR [Concomitant]
     Route: 048
     Dates: end: 20081126
  4. XANAX [Concomitant]
     Route: 048
  5. FOLVITE [Concomitant]
     Route: 048
  6. PRIMPERAN [Concomitant]
     Route: 048
     Dates: end: 20081126
  7. DEROXAT [Concomitant]
     Dates: end: 20081126
  8. RIVOTRIL [Concomitant]
     Route: 048
  9. LAMICTAL [Concomitant]
     Route: 048
     Dates: start: 20080917
  10. NEXIUM [Concomitant]
     Route: 048
     Dates: start: 20080910

REACTIONS (4)
  - CHOLELITHIASIS [None]
  - CHOLESTATIC LIVER INJURY [None]
  - HEPATOTOXICITY [None]
  - SERUM FERRITIN INCREASED [None]
